FAERS Safety Report 5905412-2 (Version None)
Quarter: 2008Q4

REPORT INFORMATION
  Report Type: 
  Country: None (occurrence: None)
  Receive Date: 20081001
  Receipt Date: 20080924
  Transmission Date: 20090506
  Serious: Yes (Other)
  Sender: FDA-Public Use
  Company Number: AT-GENENTECH-268608

PATIENT

DRUGS (13)
  1. AVASTIN [Suspect]
     Indication: MACULAR DEGENERATION
     Dosage: 1.0 MG, UNK
  2. AVASTIN [Suspect]
     Indication: RETINAL HAEMORRHAGE
  3. LUCENTIS [Suspect]
     Indication: MACULAR DEGENERATION
     Dosage: 0.05 ML, UNK
  4. LUCENTIS [Suspect]
     Indication: RETINAL HAEMORRHAGE
  5. ACTIVASE [Concomitant]
     Indication: MACULAR DEGENERATION
     Route: 031
  6. ACTIVASE [Concomitant]
     Indication: RETINAL HAEMORRHAGE
  7. ACETAZOLAMIDE [Concomitant]
     Indication: DRUG USE FOR UNKNOWN INDICATION
     Route: 042
  8. DORZOLAMIDE [Concomitant]
     Indication: DRUG USE FOR UNKNOWN INDICATION
  9. TIMOLOL MALEATE [Concomitant]
     Indication: DRUG USE FOR UNKNOWN INDICATION
  10. LIDOCAINE [Concomitant]
     Indication: DRUG USE FOR UNKNOWN INDICATION
  11. OXYBUPROCAINE [Concomitant]
     Indication: DRUG USE FOR UNKNOWN INDICATION
     Dosage: UNK GTT, UNK
  12. POVIDONE IODINE [Concomitant]
     Indication: DRUG USE FOR UNKNOWN INDICATION
  13. SF6 (SULFUR HEXAFLUORIDE) [Concomitant]
     Indication: DRUG USE FOR UNKNOWN INDICATION
     Dosage: 0.5 ML, UNK

REACTIONS (1)
  - VITREOUS HAEMORRHAGE [None]
